FAERS Safety Report 5422428-3 (Version None)
Quarter: 2007Q3

REPORT INFORMATION
  Report Type: 
  Country: None (occurrence: None)
  Receive Date: 20070822
  Receipt Date: 20070817
  Transmission Date: 20080115
  Serious: Yes (Other)
  Sender: FDA-Public Use
  Company Number: B0482974A

PATIENT
  Age: 0 Year
  Sex: Male

DRUGS (5)
  1. ABACAVIR [Suspect]
     Indication: HIV INFECTION
     Dates: start: 20070522
  2. NEVIRAPINE [Suspect]
     Indication: HIV INFECTION
     Dates: start: 20070522
  3. 3TC [Suspect]
     Indication: HIV INFECTION
     Dates: start: 20070522
  4. COTRIM [Suspect]
     Dates: start: 20070504
  5. MULTI-VITAMIN [Concomitant]
     Indication: DRUG USE FOR UNKNOWN INDICATION

REACTIONS (2)
  - HYPERSENSITIVITY [None]
  - RASH [None]
